FAERS Safety Report 20279010 (Version 1)
Quarter: 2022Q1

REPORT INFORMATION
  Report Type: Spontaneous
  Country: US (occurrence: US)
  Receive Date: 20220103
  Receipt Date: 20220103
  Transmission Date: 20220424
  Serious: No
  Sender: FDA-Public Use
  Company Number: US-drreddys-SPO/USA/21/0145343

PATIENT
  Age: 14 Year

DRUGS (3)
  1. ACCUTANE [Suspect]
     Active Substance: ISOTRETINOIN
     Indication: Product used for unknown indication
     Dosage: RMA ISSUE DATE: 19 JULY 2021 12:00:00 AM, 15 SEPTEMBER 2021 12:00:00 AM
  2. ACCUTANE [Suspect]
     Active Substance: ISOTRETINOIN
     Dosage: RMA ISSUE DATE: 16 NOVEMBER 2021 12:00:00 AM
  3. ZENATANE [Suspect]
     Active Substance: ISOTRETINOIN
     Indication: Product used for unknown indication
     Dosage: RMA ISSUE DATE: 26 FEBRUARY 2021 12:00:00 AM, 05 APRIL 2021 12:00:00 AM, 02 JUNE 2021 12:00:00 AM, 1

REACTIONS (1)
  - Treatment noncompliance [Unknown]
